FAERS Safety Report 9154125 (Version 2)
Quarter: 2013Q4

REPORT INFORMATION
  Report Type: Spontaneous
  Country: GB (occurrence: GB)
  Receive Date: 20130311
  Receipt Date: 20131001
  Transmission Date: 20140711
  Serious: Yes (Death)
  Sender: FDA-Public Use
  Company Number: GB-PFIZER INC-2013077423

PATIENT
  Age: 40 Year
  Sex: Female
  Weight: 68 kg

DRUGS (3)
  1. VENLAFAXINE HCL [Suspect]
     Dosage: UNK
     Route: 065
  2. TRAMADOL HCL [Interacting]
     Dosage: UNK
     Route: 065
  3. AMITRIPTYLINE [Interacting]
     Dosage: UNK
     Route: 065

REACTIONS (2)
  - Death [Fatal]
  - Drug interaction [Not Recovered/Not Resolved]
